FAERS Safety Report 6199886-2 (Version None)
Quarter: 2009Q2

REPORT INFORMATION
  Report Type: 
  Country: None (occurrence: None)
  Receive Date: 20090520
  Receipt Date: 20090520
  Transmission Date: 20091009
  Serious: Yes (Life-Threatening, Hospitalization)
  Sender: FDA-Public Use
  Company Number: None

PATIENT
  Age: 13 Year
  Sex: Male
  Weight: 36.9 kg

DRUGS (6)
  1. BORTEZOMIB [Suspect]
     Indication: LEUKAEMIA RECURRENT
     Dosage: 1.3MG/M2/DAY DAYS 1, 4, 8, 11 IV
     Route: 042
     Dates: start: 20090112
  2. BORTEZOMIB [Suspect]
     Indication: LEUKAEMIA RECURRENT
     Dosage: 1.3MG/M2/DAY DAYS 1, 4, 8, 11 IV
     Route: 042
     Dates: start: 20090115
  3. BORTEZOMIB [Suspect]
     Indication: LEUKAEMIA RECURRENT
     Dosage: 1.3MG/M2/DAY DAYS 1, 4, 8, 11 IV
     Route: 042
     Dates: start: 20090119
  4. BORTEZOMIB [Suspect]
     Indication: LEUKAEMIA RECURRENT
     Dosage: 1.3MG/M2/DAY DAYS 1, 4, 8, 11 IV
     Route: 042
     Dates: start: 20090122
  5. CEFEPIME [Concomitant]
  6. FLUCONAZOLE [Concomitant]

REACTIONS (10)
  - CONVULSION [None]
  - EYE PAIN [None]
  - FUNGAL SKIN INFECTION [None]
  - HEADACHE [None]
  - MUCORMYCOSIS [None]
  - MUSCLE DISORDER [None]
  - REVERSIBLE POSTERIOR LEUKOENCEPHALOPATHY SYNDROME [None]
  - SINUSITIS FUNGAL [None]
  - SWELLING [None]
  - VEIN DISORDER [None]
